FAERS Safety Report 11686643 (Version 2)
Quarter: 2015Q4

REPORT INFORMATION
  Report Type: Spontaneous
  Country: US (occurrence: US)
  Receive Date: 20151030
  Receipt Date: 20151231
  Transmission Date: 20160304
  Serious: No
  Sender: FDA-Public Use
  Company Number: US-PFIZER INC-2015065522

PATIENT
  Age: 68 Year
  Sex: Female
  Weight: 57 kg

DRUGS (6)
  1. IBRANCE [Suspect]
     Active Substance: PALBOCICLIB
     Dosage: 150 MG, UNK
  2. IBRANCE [Suspect]
     Active Substance: PALBOCICLIB
     Dosage: 125 MG, UNK
     Dates: start: 201503
  3. NEXIUM [Concomitant]
     Active Substance: ESOMEPRAZOLE MAGNESIUM
     Indication: GASTROINTESTINAL PAIN
     Dosage: UNK
  4. BENAZEPRIL [Concomitant]
     Active Substance: BENAZEPRIL HYDROCHLORIDE
     Indication: HYPERTENSION
     Dosage: 40 MG, UNK
  5. IBRANCE [Suspect]
     Active Substance: PALBOCICLIB
     Indication: BREAST CANCER
     Dosage: 125 MG, 1X/DAY
     Route: 048
     Dates: start: 201502, end: 20150806
  6. CELEBREX [Concomitant]
     Active Substance: CELECOXIB
     Indication: PAIN
     Dosage: UNK

REACTIONS (11)
  - Decreased appetite [Not Recovered/Not Resolved]
  - Immune system disorder [Unknown]
  - Malaise [Unknown]
  - Haematocrit decreased [Not Recovered/Not Resolved]
  - Weight decreased [Unknown]
  - Activities of daily living impaired [Not Recovered/Not Resolved]
  - Dyspnoea [Recovered/Resolved]
  - Disease progression [Unknown]
  - Asthenia [Unknown]
  - Breast cancer [Unknown]
  - Feeling abnormal [Unknown]
